FAERS Safety Report 9947829 (Version 1)
Quarter: 2014Q1

REPORT INFORMATION
  Report Type: Spontaneous
  Country: US (occurrence: None)
  Receive Date: 20140122
  Receipt Date: 20140122
  Transmission Date: 20141002
  Serious: Yes (Other)
  Sender: FDA-Public Use
  Company Number: AP356-00166-SPO-US

PATIENT
  Age: 69 Year
  Sex: Female

DRUGS (8)
  1. BELVIQ [Suspect]
     Indication: WEIGHT CONTROL
     Route: 048
     Dates: start: 20131010
  2. PROZAC [Concomitant]
  3. ABILIFY (ARIPIRAZOLE) [Concomitant]
  4. PRAVASTATIN  (PRAVASTATIN) [Concomitant]
  5. ANTIHYPERTENSIVE (NOS) (ANTIHYPERTENSIVES) ) [Concomitant]
  6. ZETIA (EZETIMIBE) [Concomitant]
  7. CLONOPIN (CLONAZEPAM) [Concomitant]
  8. RITALIN [Concomitant]

REACTIONS (3)
  - Dizziness [None]
  - Fatigue [None]
  - Insomnia [None]
